FAERS Safety Report 6752295-7 (Version None)
Quarter: 2010Q2

REPORT INFORMATION
  Report Type: 
  Country: None (occurrence: None)
  Receive Date: 20100602
  Receipt Date: 20100526
  Transmission Date: 20101027
  Serious: Yes (Hospitalization)
  Sender: FDA-Public Use
  Company Number: PHHY2010IT34668

PATIENT
  Age: 64 Year
  Sex: Male

DRUGS (1)
  1. EXTAVIA [Suspect]
     Dosage: UNK

REACTIONS (1)
  - MUSCULOSKELETAL STIFFNESS [None]
